FAERS Safety Report 10065360 (Version 1)
Quarter: 2014Q2

REPORT INFORMATION
  Report Type: Spontaneous
  Country: US (occurrence: None)
  Receive Date: 20140407
  Receipt Date: 20140407
  Transmission Date: 20141212
  Serious: Yes (Other)
  Sender: FDA-Public Use
  Company Number: None

PATIENT
  Age: 78 Year
  Sex: Female

DRUGS (2)
  1. CARFILZOMIB [Suspect]
     Dosage: OVER 30 MINUTES ON DAYS 1 + 2 (3/17/14 + 3/18/14)?
     Dates: start: 20140317, end: 20140318
  2. CARFILZOMIB [Suspect]
     Dosage: OVER 30 MINUTES ON DAYS: 8, 9, 15 + 16 (3/24, 3/25, 3/31, 4/1/14)
     Dates: start: 20140324, end: 20140325

REACTIONS (2)
  - Dyspnoea [None]
  - Pulmonary embolism [None]
